FAERS Safety Report 16307132 (Version 1)
Quarter: 2019Q2

REPORT INFORMATION
  Report Type: Spontaneous
  Country: US (occurrence: US)
  Receive Date: 20190514
  Receipt Date: 20190514
  Transmission Date: 20190711
  Serious: No
  Sender: FDA-Public Use
  Company Number: US-BRISTOL-MYERS SQUIBB COMPANY-BMS-2019-045748

PATIENT
  Sex: Female
  Weight: 58.96 kg

DRUGS (1)
  1. KENALOG-10 [Suspect]
     Active Substance: TRIAMCINOLONE ACETONIDE
     Indication: RHINOPLASTY
     Dosage: 10 MILLIGRAM
     Route: 065

REACTIONS (2)
  - Facial wasting [Unknown]
  - Product use in unapproved indication [Unknown]
